FAERS Safety Report 4452616-4 (Version None)
Quarter: 2004Q3

REPORT INFORMATION
  Report Type: 
  Country: None (occurrence: None)
  Receive Date: 20040916
  Receipt Date: 20040902
  Transmission Date: 20050211
  Serious: Yes (Life-Threatening, Hospitalization)
  Sender: FDA-Public Use
  Company Number: 2003013329

PATIENT
  Age: 59 Year
  Sex: Male
  Weight: 85 kg

DRUGS (9)
  1. VIAGRA [Suspect]
     Indication: ERECTILE DYSFUNCTION
     Dosage: 100 MG (PRN); ORAL
     Route: 048
     Dates: start: 20030101
  2. ALL OTHER THERAPEUTIC PRODUCTS [Concomitant]
  3. ACETYLSALICYLIC ACID [Concomitant]
  4. SIMVASTATIN [Concomitant]
  5. ATENOLOL [Concomitant]
  6. AMLODIPINE [Concomitant]
  7. NITROGLYCERIN [Concomitant]
  8. ALBUTEROL [Concomitant]
  9. BECLOMETHASONE DIPROPIONATE [Concomitant]

REACTIONS (1)
  - AORTIC DISSECTION [None]
